FAERS Safety Report 5392494-2 (Version None)
Quarter: 2007Q3

REPORT INFORMATION
  Report Type: 
  Country: None (occurrence: None)
  Receive Date: 20070720
  Receipt Date: 20070709
  Transmission Date: 20080115
  Serious: Yes (Other)
  Sender: FDA-Public Use
  Company Number: US-ELI_LILLY_AND_COMPANY-US200706000759

PATIENT
  Age: 62 Year
  Sex: Male
  Weight: 81.632 kg

DRUGS (1)
  1. HUMATROPE [Suspect]
     Indication: GROWTH HORMONE DEFICIENCY
     Dosage: 0.3 MG, DAILY (1/D)
     Dates: start: 20060822

REACTIONS (3)
  - FATIGUE [None]
  - MALAISE [None]
  - PITUITARY CYST [None]
